FAERS Safety Report 9114245 (Version 1)
Quarter: 2013Q1

REPORT INFORMATION
  Report Type: Spontaneous
  Country: US (occurrence: US)
  Receive Date: 20130208
  Receipt Date: 20130208
  Transmission Date: 20140127
  Serious: Yes (Other)
  Sender: FDA-Public Use
  Company Number: CHPA2013US002215

PATIENT
  Sex: Male

DRUGS (6)
  1. PREVACID 24HR 15MG [Suspect]
     Indication: GASTRIC DISORDER
     Dosage: 30 MG, QD
     Route: 048
     Dates: start: 201209, end: 201301
  2. ANTIBIOTICS [Suspect]
     Dosage: 60 MG, UNK
  3. SYNTHROID [Concomitant]
     Dosage: 25 MG, UNK
  4. VITAMIN D [Concomitant]
  5. MULTIVIT [Concomitant]
  6. FISH OIL [Concomitant]

REACTIONS (7)
  - Arthritis [Not Recovered/Not Resolved]
  - Muscle mass [Unknown]
  - Feeling abnormal [Not Recovered/Not Resolved]
  - Arthralgia [Recovered/Resolved]
  - Prescribed overdose [Unknown]
  - Off label use [Unknown]
  - Incorrect drug administration duration [Unknown]
